FAERS Safety Report 5831793-4 (Version None)
Quarter: 2008Q3

REPORT INFORMATION
  Report Type: 
  Country: None (occurrence: None)
  Receive Date: 20080804
  Receipt Date: 20080725
  Transmission Date: 20090109
  Serious: Yes (Death, Life-Threatening, Hospitalization, Disabling, Other)
  Sender: FDA-Public Use
  Company Number: GB-RANBAXY-2008RR-12728

PATIENT

DRUGS (6)
  1. SIMVASTATIN [Suspect]
     Dosage: 40 MG, QD
     Route: 048
     Dates: start: 20050101, end: 20071212
  2. ASPIRIN [Concomitant]
     Dosage: UNK
     Route: 048
     Dates: start: 20060101, end: 20071212
  3. AVANDAMET [Concomitant]
     Dosage: 1 DF, BID
     Route: 048
     Dates: end: 20071212
  4. FENOFIBRATE [Concomitant]
     Dosage: 160 MG, QD
     Route: 048
     Dates: start: 20060101, end: 20071212
  5. ADRENALINE [Concomitant]
     Indication: CARDIAC FAILURE
  6. NORADRENALINE [Concomitant]
     Indication: CARDIAC FAILURE

REACTIONS (5)
  - ABDOMINAL PAIN [None]
  - PANCREATITIS [None]
  - PULMONARY EMBOLISM [None]
  - RENAL FAILURE [None]
  - TACHYPNOEA [None]
